FAERS Safety Report 13275103 (Version 1)
Quarter: 2017Q1

REPORT INFORMATION
  Report Type: Spontaneous
  Country: US (occurrence: US)
  Receive Date: 20170227
  Receipt Date: 20170227
  Transmission Date: 20170428
  Serious: Yes (Other)
  Sender: FDA-Public Use
  Company Number: US-CELGENEUS-USA-2017028259

PATIENT
  Sex: Male

DRUGS (1)
  1. THALOMID [Suspect]
     Active Substance: THALIDOMIDE
     Indication: GASTRIC ANTRAL VASCULAR ECTASIA
     Dosage: 100 MILLIGRAM
     Route: 048
     Dates: start: 201608

REACTIONS (1)
  - Gastric haemorrhage [Unknown]
